FAERS Safety Report 6399598-6 (Version None)
Quarter: 2009Q4

REPORT INFORMATION
  Report Type: 
  Country: None (occurrence: None)
  Receive Date: 20091009
  Receipt Date: 20091009
  Transmission Date: 20100525
  Serious: Yes (Life-Threatening, Other)
  Sender: FDA-Public Use
  Company Number: None

PATIENT
  Age: 72 Year
  Sex: Female
  Weight: 68.0396 kg

DRUGS (9)
  1. METFORMIN HCL [Suspect]
     Indication: DIABETES MELLITUS
     Dosage: 1 TAB BID
     Dates: start: 20080901, end: 20090901
  2. ZANTAC [Concomitant]
  3. ASPIRIN [Concomitant]
  4. COQ10 [Concomitant]
  5. CINNAMON [Concomitant]
  6. MULTI-VITAMIN [Concomitant]
  7. CALTRATE (CALCIUM) [Concomitant]
  8. VIT B12 [Concomitant]
  9. GLUCOSAMINE [Concomitant]

REACTIONS (3)
  - ATRIAL FIBRILLATION [None]
  - HYPERSENSITIVITY [None]
  - LOSS OF CONSCIOUSNESS [None]
